FAERS Safety Report 7719163-5 (Version None)
Quarter: 2011Q3

REPORT INFORMATION
  Report Type: 
  Country: None (occurrence: None)
  Receive Date: 20110830
  Receipt Date: 20110823
  Transmission Date: 20111222
  Serious: Yes (Other)
  Sender: FDA-Public Use
  Company Number: IT-CELGENEUS-083-21880-11080669

PATIENT
  Sex: Male

DRUGS (7)
  1. REVLIMID [Suspect]
     Dosage: 10 MILLIGRAM
     Route: 048
     Dates: start: 20090115, end: 20110414
  2. REVLIMID [Suspect]
     Indication: MULTIPLE MYELOMA
     Dosage: 10 MILLIGRAM
     Route: 048
     Dates: start: 20050818, end: 20080624
  3. CIPROFLOXACIN [Concomitant]
     Route: 065
     Dates: start: 20050818, end: 20110510
  4. OMEPRAZOLE [Concomitant]
     Dates: start: 20050818, end: 20110510
  5. ASPIRIN [Concomitant]
     Route: 065
     Dates: start: 20050818, end: 20110510
  6. REVLIMID [Suspect]
     Dosage: 10 MILLIGRAM
     Route: 048
     Dates: start: 20080708, end: 20081203
  7. REVLIMID [Suspect]
     Dosage: 5 MILLIGRAM
     Route: 048
     Dates: start: 20110415, end: 20110614

REACTIONS (1)
  - PROSTATE CANCER [None]
